FAERS Safety Report 6167965-1 (Version None)
Quarter: 2009Q2

REPORT INFORMATION
  Report Type: 
  Country: None (occurrence: None)
  Receive Date: 20090423
  Receipt Date: 20090409
  Transmission Date: 20091009
  Serious: Yes (Other)
  Sender: FDA-Public Use
  Company Number: 2009S1006655

PATIENT
  Age: 33 Year
  Sex: Male

DRUGS (7)
  1. AZATHIOPRINE [Suspect]
     Indication: PEMPHIGUS
     Dosage: 150 MG; DAILY, 200 MG; DAILY
  2. CYCLOSPORINE [Suspect]
     Indication: PEMPHIGUS
     Dosage: 400 MG; DAILY
  3. DAPSONE [Suspect]
     Indication: PEMPHIGUS
     Dosage: 50 MG; TWICE A DAY
  4. PREDNISOLONE [Suspect]
     Indication: PEMPHIGUS
     Dosage: 45 MG; ORAL, 30 MG;
     Route: 048
  5. GOLD (GOLD) [Concomitant]
  6. MINOCYCLINE HCL [Concomitant]
  7. NICOTINAMIDE [Concomitant]

REACTIONS (12)
  - BETA HAEMOLYTIC STREPTOCOCCAL INFECTION [None]
  - BODY TINEA [None]
  - CANDIDIASIS [None]
  - FUNGAL INFECTION [None]
  - HERPES SIMPLEX [None]
  - HERPES ZOSTER [None]
  - PSEUDOMONAS INFECTION [None]
  - SKIN INFECTION [None]
  - STAPHYLOCOCCAL INFECTION [None]
  - TINEA VERSICOLOUR [None]
  - TRICHOPHYTOSIS [None]
  - VIRAL INFECTION [None]
